FAERS Safety Report 25734760 (Version 1)
Quarter: 2025Q3

REPORT INFORMATION
  Report Type: Spontaneous
  Country: US (occurrence: US)
  Receive Date: 20250828
  Receipt Date: 20250828
  Transmission Date: 20251020
  Serious: Yes (Other)
  Sender: INSMED
  Company Number: US-INSMED, INC.-2025-03415-US

PATIENT

DRUGS (1)
  1. ARIKAYCE [Suspect]
     Active Substance: AMIKACIN
     Indication: Product used for unknown indication
     Route: 055

REACTIONS (3)
  - Renal transplant [Unknown]
  - Blood creatinine increased [Unknown]
  - Unevaluable event [Unknown]
